FAERS Safety Report 7500877-7 (Version None)
Quarter: 2011Q3

REPORT INFORMATION
  Report Type: 
  Country: None (occurrence: None)
  Receive Date: 20110524
  Receipt Date: 20110523
  Transmission Date: 20111222
  Serious: Yes (Other)
  Sender: FDA-Public Use
  Company Number: B0669698A

PATIENT
  Sex: Female

DRUGS (2)
  1. ANTIBODIES [Concomitant]
     Indication: PRE-EXISTING DISEASE
     Route: 065
  2. AUGMENTIN '125' [Suspect]
     Route: 048

REACTIONS (3)
  - PURPURA [None]
  - ARTHRALGIA [None]
  - LEUKOCYTOCLASTIC VASCULITIS [None]
